FAERS Safety Report 10954685 (Version 2)
Quarter: 2015Q2

REPORT INFORMATION
  Report Type: Report from Study
  Country: JP (occurrence: JP)
  Receive Date: 20150325
  Receipt Date: 20150403
  Transmission Date: 20150821
  Serious: Yes (Hospitalization)
  Sender: FDA-Public Use
  Company Number: JP-ASTRAZENECA-2015SE25025

PATIENT
  Age: 59 Year
  Sex: Female
  Weight: 42.5 kg

DRUGS (13)
  1. FULVESTRANT [Suspect]
     Active Substance: FULVESTRANT
     Indication: BREAST CANCER
     Dosage: 500 MG DAY 1 AND 15 OF CYCLE 1
     Route: 030
     Dates: start: 20150204
  2. FULVESTRANT [Suspect]
     Active Substance: FULVESTRANT
     Indication: BREAST CANCER
     Dosage: 500 MG DAY 1 AND 15 OF CYCLE 1
     Route: 030
     Dates: start: 20150304
  3. BLINDED UNSPECIFIED DRUG [Suspect]
     Active Substance: UNSPECIFIED INGREDIENT
     Indication: BREAST CANCER
     Dosage: EVERY 12 HOURS ON DAY1 TO 28 OF A 28-DAY CYCLE
     Route: 048
     Dates: start: 20150107, end: 20150119
  4. BLINDED UNSPECIFIED DRUG [Suspect]
     Active Substance: UNSPECIFIED INGREDIENT
     Indication: BREAST CANCER
     Dosage: EVERY 12 HOURS ON DAY1 TO 28 OF A 28-DAY CYCLE
     Route: 048
     Dates: start: 20150121
  5. BLINDED UNSPECIFIED DRUG [Suspect]
     Active Substance: UNSPECIFIED INGREDIENT
     Indication: BREAST CANCER
     Dosage: EVERY 12 HOURS ON DAY1 TO 28 OF A 28-DAY CYCLE
     Route: 048
     Dates: start: 20150204
  6. FULVESTRANT [Suspect]
     Active Substance: FULVESTRANT
     Indication: BREAST CANCER
     Dosage: 500 MG DAY 1 AND 15 OF CYCLE 1
     Route: 030
     Dates: start: 20150107
  7. RANMARK [Concomitant]
     Active Substance: DENOSUMAB
     Route: 065
     Dates: start: 20140917
  8. MIROPIN [Concomitant]
     Route: 065
     Dates: start: 20150113
  9. BLINDED UNSPECIFIED DRUG [Suspect]
     Active Substance: UNSPECIFIED INGREDIENT
     Indication: BREAST CANCER
     Dosage: EVERY 12 HOURS ON DAY1 TO 28 OF A 28-DAY CYCLE
     Route: 048
     Dates: start: 20150304, end: 20150309
  10. URSO [Concomitant]
     Active Substance: URSODIOL
     Route: 065
     Dates: start: 20141128
  11. BLINDED UNSPECIFIED DRUG [Suspect]
     Active Substance: UNSPECIFIED INGREDIENT
     Indication: BREAST CANCER
     Dosage: EVERY 12 HOURS ON DAY1 TO 28 OF A 28-DAY CYCLE
     Route: 048
     Dates: start: 20150316
  12. MS REISHIPPU [Concomitant]
     Active Substance: CAMPHOR\MENTHOL\METHYL SALICYLATE
     Route: 065
     Dates: start: 20140918
  13. DENOTAS [Concomitant]
     Active Substance: CALCIUM CARBONATE\CHOLECALCIFEROL\MAGNESIUM CARBONATE
     Route: 065
     Dates: start: 20140917

REACTIONS (1)
  - Cholangitis [Recovered/Resolved]

NARRATIVE: CASE EVENT DATE: 20150309
